FAERS Safety Report 8523999-0 (Version None)
Quarter: 2012Q3

REPORT INFORMATION
  Report Type: 
  Country: None (occurrence: None)
  Receive Date: 20120720
  Receipt Date: 20120710
  Transmission Date: 20120928
  Serious: Yes (Other)
  Sender: FDA-Public Use
  Company Number: US-ASTRAZENECA-2012SE25293

PATIENT
  Age: 35 Year
  Sex: Female
  Weight: 126.1 kg

DRUGS (6)
  1. MOTRIN [Concomitant]
  2. FLEXERIL [Concomitant]
  3. NEXIUM [Suspect]
     Route: 048
     Dates: start: 20110906
  4. LEXAPRO [Concomitant]
     Dates: start: 20110906
  5. FLEXERIL [Concomitant]
  6. MOTRIN [Concomitant]
     Indication: PAIN

REACTIONS (4)
  - BRONCHITIS CHRONIC [None]
  - CHRONIC OBSTRUCTIVE PULMONARY DISEASE [None]
  - OROPHARYNGEAL PAIN [None]
  - OFF LABEL USE [None]
